FAERS Safety Report 18493742 (Version 2)
Quarter: 2020Q4

REPORT INFORMATION
  Report Type: Report from Study
  Country: US (occurrence: US)
  Receive Date: 20201111
  Receipt Date: 20201126
  Transmission Date: 20210114
  Serious: Yes (Hospitalization, Other)
  Sender: FDA-Public Use
  Company Number: US-SHIRE-US202033038

PATIENT
  Sex: Female

DRUGS (4)
  1. TEDUGLUTIDE [Suspect]
     Active Substance: TEDUGLUTIDE
     Indication: SHORT-BOWEL SYNDROME
     Dosage: 3.9 MILLIGRAM, QD
     Route: 058
     Dates: start: 20200915
  2. TEDUGLUTIDE [Suspect]
     Active Substance: TEDUGLUTIDE
     Indication: SHORT-BOWEL SYNDROME
     Dosage: 3.9 MILLIGRAM, QD
     Route: 058
     Dates: start: 20200915
  3. TEDUGLUTIDE [Suspect]
     Active Substance: TEDUGLUTIDE
     Indication: SHORT-BOWEL SYNDROME
     Dosage: 3.9 MILLIGRAM, QD
     Route: 058
     Dates: start: 20200915
  4. TEDUGLUTIDE [Suspect]
     Active Substance: TEDUGLUTIDE
     Indication: SHORT-BOWEL SYNDROME
     Dosage: 3.9 MILLIGRAM, QD
     Route: 058
     Dates: start: 20200915

REACTIONS (7)
  - Dumping syndrome [Unknown]
  - Hospitalisation [Unknown]
  - Fatigue [Unknown]
  - Vomiting [Unknown]
  - Stoma complication [Unknown]
  - Dehydration [Unknown]
  - Nausea [Unknown]
